FAERS Safety Report 5814131-2 (Version None)
Quarter: 2008Q3

REPORT INFORMATION
  Report Type: 
  Country: None (occurrence: None)
  Receive Date: 20080717
  Receipt Date: 20080702
  Transmission Date: 20090109
  Serious: Yes (Hospitalization)
  Sender: FDA-Public Use
  Company Number: DE-GENENTECH-262276

PATIENT
  Sex: Female

DRUGS (4)
  1. BEVACIZUMAB [Suspect]
     Indication: COLON CANCER
     Dosage: 350 MG, UNK
  2. GRANISETRON HCL [Suspect]
     Indication: COLON CANCER
     Dosage: 1 MG, UNK
     Route: 042
     Dates: start: 20080415
  3. IRINOTECAN HCL [Suspect]
     Indication: COLON CANCER
     Dosage: 315 MG, UNK
     Route: 042
     Dates: start: 20080415
  4. FLUOROURACIL [Suspect]
     Indication: COLON CANCER
     Dosage: 705 MG, UNK
     Route: 040
     Dates: start: 20080415

REACTIONS (1)
  - ATRIAL FIBRILLATION [None]
